FAERS Safety Report 8896118 (Version 2)
Quarter: 2012Q4

REPORT INFORMATION
  Report Type: 
  Country: CH (occurrence: CH)
  Receive Date: 20121108
  Receipt Date: 20121119
  Transmission Date: 20130627
  Serious: Yes (Death)
  Sender: FDA-Public Use
  Company Number: CH-ROCHE-1153398

PATIENT
  Age: 65 Year
  Sex: Female

DRUGS (1)
  1. ZELBORAF [Suspect]
     Indication: LUNG ADENOCARCINOMA METASTATIC
     Route: 048
     Dates: start: 20121024

REACTIONS (1)
  - Tumour haemorrhage [Fatal]
